FAERS Safety Report 8045333-5 (Version None)
Quarter: 2012Q1

REPORT INFORMATION
  Report Type: 
  Country: None (occurrence: None)
  Receive Date: 20120113
  Receipt Date: 20120111
  Transmission Date: 20120608
  Serious: Yes (Death)
  Sender: FDA-Public Use
  Company Number: AU-B.I. PHARMACEUTICALS,INC./RIDGEFIELD-2011-AU-02183AU

PATIENT
  Sex: Female
  Weight: 55 kg

DRUGS (7)
  1. PRADAXA [Suspect]
     Indication: CEREBROVASCULAR ACCIDENT PROPHYLAXIS
     Dosage: 220 MG
     Dates: start: 20110824
  2. PANAMAX [Concomitant]
  3. BISOPROLOL FUMARATE [Concomitant]
  4. PRADAXA [Suspect]
     Indication: ATRIAL FIBRILLATION
  5. COVERSYL PLUS [Concomitant]
     Dosage: 5/1.25MG
  6. FUROSEMIDE [Concomitant]
     Dates: start: 20100505
  7. DIGOXIN [Concomitant]

REACTIONS (3)
  - RENAL IMPAIRMENT [None]
  - HYPOVOLAEMIA [None]
  - MYOCARDIAL INFARCTION [None]
